FAERS Safety Report 23039926 (Version 2)
Quarter: 2023Q4

REPORT INFORMATION
  Report Type: Spontaneous
  Country: US (occurrence: None)
  Receive Date: 20231006
  Receipt Date: 20231115
  Transmission Date: 20240109
  Serious: Yes (Hospitalization)
  Sender: FDA-Public Use
  Company Number: US-ROCHE-3300812

PATIENT
  Age: 3 Year
  Sex: Male

DRUGS (1)
  1. HEMLIBRA [Suspect]
     Active Substance: EMICIZUMAB-KXWH
     Indication: Factor VIII deficiency
     Dosage: YES
     Route: 058
     Dates: start: 202203

REACTIONS (3)
  - Head injury [Unknown]
  - Fall [Unknown]
  - Mass [Unknown]

NARRATIVE: CASE EVENT DATE: 20221117
